FAERS Safety Report 15737540 (Version 1)
Quarter: 2018Q4

REPORT INFORMATION
  Report Type: Report from Study
  Country: US (occurrence: US)
  Receive Date: 20181219
  Receipt Date: 20181219
  Transmission Date: 20190205
  Serious: Yes (Other)
  Sender: FDA-Public Use
  Company Number: PHHY2018US187637

PATIENT
  Sex: Male

DRUGS (3)
  1. VENCLEXTA [Suspect]
     Active Substance: VENETOCLAX
     Dosage: 600 MG, QD
     Route: 048
     Dates: start: 2018
  2. VENCLEXTA [Suspect]
     Active Substance: VENETOCLAX
     Indication: PLASMA CELL MYELOMA
     Dosage: 600 MG, QD
     Route: 048
     Dates: start: 20180823
  3. ZOPHREN [Suspect]
     Active Substance: ONDANSETRON
     Indication: PRODUCT USED FOR UNKNOWN INDICATION
     Dosage: UNK
     Route: 065

REACTIONS (17)
  - Haemoglobin decreased [Not Recovered/Not Resolved]
  - Neutrophil count decreased [Not Recovered/Not Resolved]
  - Orthostatic hypotension [Not Recovered/Not Resolved]
  - Platelet count decreased [Not Recovered/Not Resolved]
  - Abdominal discomfort [Unknown]
  - Light chain analysis decreased [Not Recovered/Not Resolved]
  - White blood cell count decreased [Not Recovered/Not Resolved]
  - Lower respiratory tract infection [Not Recovered/Not Resolved]
  - Syncope [Not Recovered/Not Resolved]
  - Somnolence [Not Recovered/Not Resolved]
  - Gait disturbance [Not Recovered/Not Resolved]
  - Red blood cell count decreased [Not Recovered/Not Resolved]
  - Constipation [Not Recovered/Not Resolved]
  - Drug hypersensitivity [Unknown]
  - Decreased appetite [Not Recovered/Not Resolved]
  - Fatigue [Not Recovered/Not Resolved]
  - Off label use [Unknown]

NARRATIVE: CASE EVENT DATE: 2018
